FAERS Safety Report 12909493 (Version 1)
Quarter: 2016Q4

REPORT INFORMATION
  Report Type: Spontaneous
  Country: GB (occurrence: GB)
  Receive Date: 20161104
  Receipt Date: 20161104
  Transmission Date: 20170207
  Serious: Yes (Hospitalization)
  Sender: FDA-Public Use
  Company Number: GB-ROCHE-1850167

PATIENT
  Age: 39 Year
  Sex: Female

DRUGS (3)
  1. CEFTRIAXONE. [Suspect]
     Active Substance: CEFTRIAXONE
     Indication: TUBO-OVARIAN ABSCESS
     Dosage: (TO BE ON FOR 6 WEEKS).
     Route: 041
  2. METRONIDAZOLE. [Concomitant]
     Active Substance: METRONIDAZOLE
     Dosage: 10 DAYS COMPLETE (DAY 6).
     Route: 040
  3. DOXYCYCLINE. [Concomitant]
     Active Substance: DOXYCYCLINE
     Dosage: 10 DAYS (DAY 5).
     Route: 048

REACTIONS (2)
  - Hypokalaemia [Not Recovered/Not Resolved]
  - Vomiting [Recovered/Resolved]
